FAERS Safety Report 23514963 (Version 2)
Quarter: 2024Q1

REPORT INFORMATION
  Report Type: Report from Study
  Country: US (occurrence: US)
  Receive Date: 20240212
  Receipt Date: 20240222
  Transmission Date: 20240410
  Serious: Yes (Other)
  Sender: FDA-Public Use
  Company Number: US-ABBVIE-5630718

PATIENT
  Sex: Female

DRUGS (2)
  1. VENCLEXTA [Suspect]
     Active Substance: VENETOCLAX
     Indication: Chloroma
     Dosage: FORM STRENGTH: 100 MG
     Route: 048
  2. VENCLEXTA [Suspect]
     Active Substance: VENETOCLAX
     Indication: Chloroma
     Dosage: FORM STRENGTH: 100 MG
     Route: 048

REACTIONS (4)
  - Cerebrovascular accident [Unknown]
  - Confusional state [Unknown]
  - Off label use [Unknown]
  - Memory impairment [Unknown]
